FAERS Safety Report 10369176 (Version 1)
Quarter: 2014Q1

REPORT INFORMATION
  Report Type: Spontaneous
  Country: US (occurrence: None)
  Receive Date: 20140306
  Receipt Date: 20140306
  Transmission Date: 20141002
  Serious: Yes (Hospitalization)
  Sender: FDA-Public Use
  Company Number: 163-21880-13091476

PATIENT
  Age: 64 Year
  Sex: Male
  Weight: 99.34 kg

DRUGS (11)
  1. REVLIMID (LENALIDOMIDE) (25 MILLIGRAM, CAPSULES) [Suspect]
     Indication: PLASMA CELL MYELOMA
     Dosage: 25 MG, 1 IN 1 D, PO 02/ 2012 - UNKNOWN THERAPY DATES
     Route: 048
     Dates: start: 201202
  2. AMLODIPINE [Concomitant]
  3. ATORVASTATIN [Concomitant]
  4. LISINOPROL [Concomitant]
  5. METOPROLOL XL(METOPROLOL) [Concomitant]
  6. OMEPRAZOLE [Concomitant]
  7. ALPRAZOLAM [Concomitant]
  8. ERGOCALCIFEROL [Concomitant]
  9. ZOLPIDEM [Concomitant]
  10. MULTIVITAMIN (MULTIVITAMINS) [Concomitant]
  11. OMEGA 3 FATTY ACIDS  (FISH OIL) [Concomitant]

REACTIONS (1)
  - Varicella [None]
